FAERS Safety Report 12671986 (Version 1)
Quarter: 2016Q3

REPORT INFORMATION
  Report Type: Spontaneous
  Country: US (occurrence: US)
  Receive Date: 20160822
  Receipt Date: 20160822
  Transmission Date: 20161109
  Serious: No
  Sender: FDA-Public Use
  Company Number: US-PFIZER INC-2016369707

PATIENT
  Sex: Female

DRUGS (1)
  1. CYTOMEL [Suspect]
     Active Substance: LIOTHYRONINE SODIUM

REACTIONS (2)
  - Adrenal disorder [Unknown]
  - Abdominal pain [Not Recovered/Not Resolved]
